FAERS Safety Report 20786832 (Version 1)
Quarter: 2022Q2

REPORT INFORMATION
  Report Type: Spontaneous
  Country: US (occurrence: US)
  Receive Date: 20220505
  Receipt Date: 20220505
  Transmission Date: 20220721
  Serious: No
  Sender: FDA-Public Use
  Company Number: US-SA-SAC20220429000872

PATIENT
  Sex: Female

DRUGS (2)
  1. DUPIXENT [Suspect]
     Active Substance: DUPILUMAB
     Indication: Asthma
     Dosage: 300 MG, QOW
     Route: 058
  2. DUPIXENT [Suspect]
     Active Substance: DUPILUMAB
     Indication: Nasal polyps

REACTIONS (8)
  - Nasal polyps [Unknown]
  - Condition aggravated [Unknown]
  - Sinusitis [Unknown]
  - Paranasal sinus discomfort [Unknown]
  - Ear pain [Unknown]
  - Oropharyngeal pain [Unknown]
  - Nausea [Unknown]
  - Product use in unapproved indication [Unknown]
